FAERS Safety Report 19512367 (Version 3)
Quarter: 2021Q4

REPORT INFORMATION
  Report Type: Spontaneous
  Country: IT (occurrence: IT)
  Receive Date: 20210709
  Receipt Date: 20211109
  Transmission Date: 20220303
  Serious: Yes (Death, Life-Threatening, Hospitalization, Other)
  Sender: FDA-Public Use
  Company Number: IT-AMGEN-ITASP2021104394

PATIENT

DRUGS (1)
  1. PANITUMUMAB [Suspect]
     Active Substance: PANITUMUMAB
     Indication: Colorectal cancer metastatic
     Dosage: UNK
     Route: 065

REACTIONS (16)
  - Death [Fatal]
  - Neutropenia [Unknown]
  - Toxicity to various agents [Unknown]
  - Colorectal cancer metastatic [Unknown]
  - Vomiting [Unknown]
  - Fatigue [Unknown]
  - Paronychia [Unknown]
  - Rash [Unknown]
  - Diarrhoea [Unknown]
  - Peripheral sensory neuropathy [Unknown]
  - Anaemia [Unknown]
  - Nausea [Unknown]
  - Asthenia [Unknown]
  - Therapeutic product effect incomplete [Unknown]
  - Mucosal inflammation [Unknown]
  - Conjunctivitis [Unknown]
